FAERS Safety Report 6505550-X (Version None)
Quarter: 2009Q4

REPORT INFORMATION
  Report Type: 
  Country: None (occurrence: None)
  Receive Date: 20091218
  Receipt Date: 20091124
  Transmission Date: 20100525
  Serious: No
  Sender: FDA-Public Use
  Company Number: US-BAYER-200941075NA

PATIENT
  Age: 44 Year
  Sex: Female
  Weight: 63 kg

DRUGS (4)
  1. MIRENA [Suspect]
     Indication: MENORRHAGIA
     Dosage: CONTINUOUS
     Route: 015
     Dates: start: 20090603, end: 20091113
  2. VITAMINS WITH IRON [Concomitant]
  3. BENADRYL [Concomitant]
  4. NASONEX [Concomitant]

REACTIONS (12)
  - ACNE [None]
  - ANXIETY [None]
  - BREAST TENDERNESS [None]
  - DEPRESSION [None]
  - DISCOMFORT [None]
  - DIZZINESS [None]
  - MENOMETRORRHAGIA [None]
  - NAUSEA [None]
  - SLEEP DISORDER [None]
  - VAGINAL DISCHARGE [None]
  - VAGINAL HAEMORRHAGE [None]
  - WEIGHT INCREASED [None]
